FAERS Safety Report 24261412 (Version 1)
Quarter: 2024Q3

REPORT INFORMATION
  Report Type: Spontaneous
  Country: US (occurrence: US)
  Receive Date: 20240829
  Receipt Date: 20240829
  Transmission Date: 20241016
  Serious: No
  Sender: ROCHE
  Company Number: US-ROCHE-10000065230

PATIENT
  Age: 46 Year
  Sex: Female

DRUGS (1)
  1. XOLAIR [Suspect]
     Active Substance: OMALIZUMAB
     Indication: Product used for unknown indication
     Dosage: 1ST INJECTION
     Route: 065
     Dates: start: 20240820

REACTIONS (19)
  - Nausea [Unknown]
  - Swelling [Unknown]
  - Pruritus [Unknown]
  - Lethargy [Unknown]
  - Slow speech [Unknown]
  - Throat irritation [Unknown]
  - Fatigue [Unknown]
  - Myalgia [Unknown]
  - Eye inflammation [Unknown]
  - Eye disorder [Unknown]
  - Chest discomfort [Unknown]
  - Anxiety [Unknown]
  - Gastrointestinal disorder [Unknown]
  - Night sweats [Unknown]
  - Oropharyngeal pain [Unknown]
  - Nasal discomfort [Unknown]
  - Asthenia [Unknown]
  - Nasal discomfort [Unknown]
  - Arthralgia [Unknown]
